FAERS Safety Report 5911303-3 (Version None)
Quarter: 2008Q4

REPORT INFORMATION
  Report Type: 
  Country: None (occurrence: None)
  Receive Date: 20081007
  Receipt Date: 20080930
  Transmission Date: 20090506
  Serious: No
  Sender: FDA-Public Use
  Company Number: US-B.I. PHARMACEUTICALS,INC./RIDGEFIELD-2008-BP-15257BP

PATIENT
  Age: 65 Year
  Sex: Female

DRUGS (3)
  1. SPIRIVA [Suspect]
     Indication: CHRONIC OBSTRUCTIVE PULMONARY DISEASE
     Dosage: 18MCG
     Route: 055
     Dates: start: 20060501
  2. XOPENEX HFA [Suspect]
     Indication: CHRONIC OBSTRUCTIVE PULMONARY DISEASE
  3. LASIX [Concomitant]
     Indication: HYPERTENSION

REACTIONS (13)
  - AURICULAR SWELLING [None]
  - CHOKING SENSATION [None]
  - DYSPHONIA [None]
  - EAR CANAL STENOSIS [None]
  - FOREIGN BODY TRAUMA [None]
  - HYPERSENSITIVITY [None]
  - HYPOACUSIS [None]
  - MIDDLE EAR EFFUSION [None]
  - PALATAL OEDEMA [None]
  - SALIVARY GLAND DISORDER [None]
  - THROAT TIGHTNESS [None]
  - THYROID DISORDER [None]
  - VERTIGO [None]
